FAERS Safety Report 10553483 (Version 1)
Quarter: 2014Q4

REPORT INFORMATION
  Report Type: Spontaneous
  Country: IT (occurrence: None)
  Receive Date: 20141028
  Receipt Date: 20141028
  Transmission Date: 20150529
  Serious: Yes (Hospitalization)
  Sender: FDA-Public Use
  Company Number: VAL_03487_2014

PATIENT
  Age: 58 Year
  Sex: Male

DRUGS (1)
  1. CARBAMAZEPINE. [Suspect]
     Active Substance: CARBAMAZEPINE
     Indication: PRODUCT USED FOR UNKNOWN INDICATION
     Dosage: (DF)

REACTIONS (6)
  - Pancreatitis acute [None]
  - Pyrexia [None]
  - Hepatic function abnormal [None]
  - Asthenia [None]
  - Drug reaction with eosinophilia and systemic symptoms [None]
  - Lymphadenopathy [None]
